FAERS Safety Report 17178683 (Version 1)
Quarter: 2019Q4

REPORT INFORMATION
  Report Type: Spontaneous
  Country: US (occurrence: US)
  Receive Date: 20191219
  Receipt Date: 20191219
  Transmission Date: 20200122
  Serious: No
  Sender: FDA-Public Use
  Company Number: US-AUROBINDO-AUR-APL-2019-071971

PATIENT
  Age: 43 Year
  Sex: Male
  Weight: 97 kg

DRUGS (1)
  1. ARMODAFINIL 150 MG TABLETS [Suspect]
     Active Substance: ARMODAFINIL
     Indication: POOR QUALITY SLEEP
     Dosage: HALF TABLET PER DAY
     Route: 048
     Dates: start: 20191016

REACTIONS (5)
  - Product odour abnormal [Unknown]
  - Abdominal pain upper [Recovered/Resolved]
  - Product taste abnormal [Unknown]
  - Wrong technique in product usage process [Recovered/Resolved]
  - Product storage error [Recovered/Resolved]

NARRATIVE: CASE EVENT DATE: 20191016
